FAERS Safety Report 4280347-2 (Version None)
Quarter: 2004Q1

REPORT INFORMATION
  Report Type: 
  Country: None (occurrence: None)
  Receive Date: 20040123
  Receipt Date: 20040113
  Transmission Date: 20041129
  Serious: Yes (Hospitalization)
  Sender: FDA-Public Use
  Company Number: FR-JNJFOC-20040102194

PATIENT
  Age: 39 Year
  Sex: Female

DRUGS (3)
  1. ZALDIAR (TRAMADOL/APAP) TABLETS [Suspect]
     Indication: BACK PAIN
     Dosage: 6 DOSE (S), 1 IN 1 DAY, ORAL
     Route: 048
     Dates: start: 20031023, end: 20031023
  2. ZALDIAR (TRAMADOL/APAP) TABLETS [Suspect]
     Indication: BACK PAIN
     Dosage: 6 DOSE (S), 1 IN 1 DAY, ORAL
     Route: 048
     Dates: start: 20031023, end: 20031029
  3. ATEPADENE (ATEPADENE) [Concomitant]

REACTIONS (2)
  - TOXIC SKIN ERUPTION [None]
  - URTICARIA [None]
